FAERS Safety Report 8354460-4 (Version None)
Quarter: 2012Q2

REPORT INFORMATION
  Report Type: 
  Country: None (occurrence: None)
  Receive Date: 20120511
  Receipt Date: 20120502
  Transmission Date: 20120825
  Serious: Yes (Other)
  Sender: FDA-Public Use
  Company Number: US-JNJFOC-20111102729

PATIENT
  Sex: Female
  Weight: 61.4 kg

DRUGS (11)
  1. PREDNISONE TAB [Concomitant]
  2. NEXIUM [Concomitant]
  3. MESALAMINE [Concomitant]
     Route: 048
  4. ADALIMUMAB [Concomitant]
  5. ANTIBIOTICS FOR IBD [Concomitant]
     Indication: INFLAMMATORY BOWEL DISEASE
  6. BUDESONIDE [Concomitant]
  7. LEVSIN PB [Concomitant]
  8. INFLIXIMAB, RECOMBINANT [Suspect]
     Indication: CROHN'S DISEASE
     Route: 042
     Dates: start: 20090724, end: 20101217
  9. ADALIMUMAB [Concomitant]
     Dates: start: 20110427
  10. ZOFRAN [Concomitant]
  11. BENADRYL [Concomitant]

REACTIONS (1)
  - CROHN'S DISEASE [None]
